FAERS Safety Report 5011218-1 (Version None)
Quarter: 2006Q2

REPORT INFORMATION
  Report Type: 
  Country: None (occurrence: None)
  Receive Date: 20060523
  Receipt Date: 20060523
  Transmission Date: 20061013
  Serious: Yes (Hospitalization)
  Sender: FDA-Public Use
  Company Number: None

PATIENT
  Age: 50 Year
  Sex: Female
  Weight: 39.9165 kg

DRUGS (3)
  1. ZONEGRAN [Suspect]
     Indication: EPILEPSY
     Dosage: 200-400 MG QD PO
     Route: 048
     Dates: start: 20021201, end: 20030701
  2. MYSOLINE [Concomitant]
  3. SERTRALINE [Concomitant]

REACTIONS (10)
  - ANTISOCIAL BEHAVIOUR [None]
  - BELLIGERENCE [None]
  - HALLUCINATIONS, MIXED [None]
  - HOSTILITY [None]
  - IMPAIRED SELF-CARE [None]
  - IRRITABILITY [None]
  - ORAL INTAKE REDUCED [None]
  - PARANOIA [None]
  - PSYCHOTIC DISORDER [None]
  - REPETITIVE SPEECH [None]
